FAERS Safety Report 7911557-8 (Version None)
Quarter: 2011Q4

REPORT INFORMATION
  Report Type: 
  Country: None (occurrence: None)
  Receive Date: 20111114
  Receipt Date: 20111110
  Transmission Date: 20120403
  Serious: Yes (Hospitalization)
  Sender: FDA-Public Use
  Company Number: JP-ABBOTT-11P-087-0731995-00

PATIENT
  Sex: Male

DRUGS (8)
  1. HUMIRA [Suspect]
     Dates: start: 20110319, end: 20110319
  2. LOPERAMIDE HCL [Concomitant]
     Indication: PRODUCT USED FOR UNKNOWN INDICATION
     Route: 048
  3. LOXOPROFEN SODIUM [Concomitant]
     Indication: CROHN'S DISEASE
     Route: 048
  4. PREDNISOLONE [Concomitant]
     Indication: CROHN'S DISEASE
     Route: 048
     Dates: start: 20110409
  5. HUMIRA [Suspect]
     Indication: CROHN'S DISEASE
     Route: 058
     Dates: start: 20110305, end: 20110305
  6. HUMIRA [Suspect]
     Dates: start: 20110402, end: 20110428
  7. MESALAMINE [Concomitant]
     Indication: CROHN'S DISEASE
     Route: 048
  8. LOXOPROFEN SODIUM [Concomitant]
     Indication: PAIN

REACTIONS (3)
  - PYREXIA [None]
  - MELAENA [None]
  - TONSILLITIS [None]
